FAERS Safety Report 24574303 (Version 1)
Quarter: 2024Q4

REPORT INFORMATION
  Report Type: Spontaneous
  Country: US (occurrence: None)
  Receive Date: 20241104
  Receipt Date: 20241104
  Transmission Date: 20250114
  Serious: No
  Sender: Valinor Pharma
  Company Number: US-ARIS GLOBAL-VLR202404-000049

PATIENT
  Sex: Female

DRUGS (3)
  1. MOVANTIK [Suspect]
     Active Substance: NALOXEGOL OXALATE
     Indication: Product used for unknown indication
     Route: 048
  2. MOVANTIK [Suspect]
     Active Substance: NALOXEGOL OXALATE
     Route: 048
  3. UNSPECIFIED INGREDIENT [Concomitant]
     Active Substance: UNSPECIFIED INGREDIENT
     Indication: Product used for unknown indication
     Dosage: UNK
     Route: 065

REACTIONS (3)
  - Drug withdrawal syndrome [Unknown]
  - Drug ineffective [Unknown]
  - Intentional overdose [Unknown]
